FAERS Safety Report 13906178 (Version 1)
Quarter: 2017Q3

REPORT INFORMATION
  Report Type: Spontaneous
  Country: KR (occurrence: KR)
  Receive Date: 20170825
  Receipt Date: 20170825
  Transmission Date: 20171127
  Serious: Yes (Other)
  Sender: FDA-Public Use
  Company Number: KR-REGENERON PHARMACEUTICALS, INC.-2017-20837

PATIENT

DRUGS (3)
  1. EYLEA [Suspect]
     Active Substance: AFLIBERCEPT
     Indication: NEOVASCULAR AGE-RELATED MACULAR DEGENERATION
     Dosage: DOSE NOT REPORTED, PATIENT RECEIVED ONLY ONE DOSE OF AFLIBERCEPT
  2. RANIBIZUMAB. [Suspect]
     Active Substance: RANIBIZUMAB
     Indication: NEOVASCULAR AGE-RELATED MACULAR DEGENERATION
     Dosage: RECEIVED INTRAVITREAL INJECTION 14 TIMES
     Route: 031
  3. BEVACIZUMAB. [Suspect]
     Active Substance: BEVACIZUMAB
     Indication: NEOVASCULAR AGE-RELATED MACULAR DEGENERATION
     Dosage: RECEIVED THREE INJECTIONS
     Route: 031

REACTIONS (4)
  - Macular hole [Recovered/Resolved]
  - Blindness transient [Recovered/Resolved]
  - Vitreous detachment [Unknown]
  - Subretinal fluid [Unknown]
